FAERS Safety Report 8576558-8 (Version None)
Quarter: 2012Q3

REPORT INFORMATION
  Report Type: 
  Country: None (occurrence: None)
  Receive Date: 20120807
  Receipt Date: 20120731
  Transmission Date: 20120928
  Serious: No
  Sender: FDA-Public Use
  Company Number: JP-JNJFOC-20120714123

PATIENT
  Age: 60 Year
  Sex: Male

DRUGS (2)
  1. TRAMADOL HCL [Suspect]
     Indication: BACK PAIN
     Dosage: 2 DF X 1 PER 1 DAY
     Route: 048
     Dates: start: 20120725
  2. TRAMADOL HCL [Suspect]
     Route: 048
     Dates: end: 20120724

REACTIONS (1)
  - RESPIRATORY RATE INCREASED [None]
